FAERS Safety Report 7246823-5 (Version None)
Quarter: 2011Q1

REPORT INFORMATION
  Report Type: 
  Country: None (occurrence: None)
  Receive Date: 20110127
  Receipt Date: 20110125
  Transmission Date: 20110831
  Serious: Yes (Other)
  Sender: FDA-Public Use
  Company Number: DE-PFIZER INC-2010048047

PATIENT
  Age: 30 Year
  Sex: Female

DRUGS (2)
  1. ZELDOX [Suspect]
     Dosage: 40 MG PER DAY
     Route: 048
  2. VENLAFAXINE HCL [Suspect]
     Dosage: 75 MG, 1X/DAY
     Route: 048
     Dates: start: 20100201

REACTIONS (4)
  - HYPOMENORRHOEA [None]
  - BRADYCARDIA [None]
  - BLOOD PROLACTIN DECREASED [None]
  - CONDITION AGGRAVATED [None]
